FAERS Safety Report 9235427 (Version 2)
Quarter: 2013Q2

REPORT INFORMATION
  Report Type: Spontaneous
  Country: FR (occurrence: FR)
  Receive Date: 20130417
  Receipt Date: 20130606
  Transmission Date: 20140414
  Serious: Yes (Hospitalization)
  Sender: FDA-Public Use
  Company Number: FR-RANBAXY-2013RR-67526

PATIENT
  Age: 71 Year
  Sex: Female

DRUGS (6)
  1. AMOXICILLIN [Suspect]
     Indication: PRODUCT USED FOR UNKNOWN INDICATION
     Dosage: 1 G/DAY
     Route: 048
     Dates: start: 20130129, end: 20130205
  2. AUGMENTIN [Suspect]
     Indication: PRODUCT USED FOR UNKNOWN INDICATION
     Dosage: 1 G, BID
     Route: 048
     Dates: start: 20130112, end: 20130120
  3. DERINOX [Suspect]
     Indication: BRONCHITIS
     Dosage: 1 DF, QID
     Route: 045
     Dates: start: 20130112
  4. DIMETANE SANS SUCRE [Suspect]
     Indication: COUGH
     Dosage: 1 DF, TID
     Route: 048
     Dates: start: 20130112
  5. VELCADE [Suspect]
     Indication: PRODUCT USED FOR UNKNOWN INDICATION
     Dosage: 1.5 MG, MONTHLY
     Route: 042
     Dates: start: 20120621, end: 20130125
  6. MELPHALAN [Concomitant]
     Indication: PLASMA CELL MYELOMA
     Dosage: UNK
     Route: 065

REACTIONS (1)
  - Pancytopenia [Recovering/Resolving]
